FAERS Safety Report 7905853-8 (Version None)
Quarter: 2011Q4

REPORT INFORMATION
  Report Type: 
  Country: None (occurrence: None)
  Receive Date: 20111110
  Receipt Date: 20111107
  Transmission Date: 20120403
  Serious: No
  Sender: FDA-Public Use
  Company Number: US-PFIZER INC-2011273065

PATIENT
  Age: 50 Year
  Sex: Female

DRUGS (4)
  1. LYRICA [Suspect]
     Indication: FIBROMYALGIA
     Dosage: 75 MG, 2X/DAY
  2. RELAFEN [Suspect]
     Dosage: UNK
  3. HYZAAR [Suspect]
     Dosage: UNK
  4. NORFLEX [Suspect]
     Dosage: UNK

REACTIONS (1)
  - HYPOAESTHESIA [None]
